FAERS Safety Report 5011162-X (Version None)
Quarter: 2006Q2

REPORT INFORMATION
  Report Type: 
  Country: None (occurrence: None)
  Receive Date: 20060523
  Receipt Date: 20060523
  Transmission Date: 20061013
  Serious: No
  Sender: FDA-Public Use
  Company Number: None

PATIENT
  Age: 60 Year
  Sex: Male

DRUGS (1)
  1. HEPARIN [Suspect]
     Indication: CHEST PAIN
     Dosage: INFUSION
     Dates: start: 20040918, end: 20040920

REACTIONS (14)
  - ANAESTHETIC COMPLICATION [None]
  - DEHYDRATION [None]
  - HAEMATOCRIT DECREASED [None]
  - HAEMOCHROMATOSIS [None]
  - HAEMORRHOIDS [None]
  - JAUNDICE [None]
  - LOSS OF CONSCIOUSNESS [None]
  - MUSCLE CONTRACTIONS INVOLUNTARY [None]
  - MUSCLE RIGIDITY [None]
  - PHARYNGOESOPHAGEAL DIVERTICULUM [None]
  - POSTURING [None]
  - RECTAL HAEMORRHAGE [None]
  - SERUM FERRITIN INCREASED [None]
  - WEIGHT DECREASED [None]
